FAERS Safety Report 5165087-X (Version None)
Quarter: 2006Q4

REPORT INFORMATION
  Report Type: 
  Country: None (occurrence: None)
  Receive Date: 20061127
  Receipt Date: 20061115
  Transmission Date: 20070319
  Serious: Yes (Other)
  Sender: FDA-Public Use
  Company Number: 2006AP001010

PATIENT
  Age: 62 Year
  Sex: Male

DRUGS (1)
  1. AMIODARONE HCL [Suspect]
     Indication: ARRHYTHMIA
     Dosage: 1200 MG; QD

REACTIONS (3)
  - HEMIANOPIA [None]
  - KERATOPATHY [None]
  - OPTIC ISCHAEMIC NEUROPATHY [None]
